FAERS Safety Report 24847980 (Version 1)
Quarter: 2025Q1

REPORT INFORMATION
  Report Type: Report from Study
  Country: AT (occurrence: AT)
  Receive Date: 20250116
  Receipt Date: 20250116
  Transmission Date: 20250409
  Serious: Yes (Hospitalization)
  Sender: ABBVIE
  Company Number: AT-ABBVIE-6085559

PATIENT
  Age: 37 Year
  Sex: Female

DRUGS (1)
  1. RINVOQ [Suspect]
     Active Substance: UPADACITINIB
     Indication: Psoriasis
     Route: 048
     Dates: start: 202409, end: 202411

REACTIONS (6)
  - Gastrointestinal wall thickening [Recovering/Resolving]
  - Gastrointestinal disorder [Recovering/Resolving]
  - Dry skin [Recovering/Resolving]
  - Anal abscess [Recovering/Resolving]
  - Gastrointestinal inflammation [Recovering/Resolving]
  - Postoperative wound infection [Not Recovered/Not Resolved]

NARRATIVE: CASE EVENT DATE: 20241225
